FAERS Safety Report 10592627 (Version 1)
Quarter: 2014Q4

REPORT INFORMATION
  Report Type: Spontaneous
  Country: CR (occurrence: CR)
  Receive Date: 20141119
  Receipt Date: 20141119
  Transmission Date: 20150529
  Serious: Yes (Hospitalization)
  Sender: FDA-Public Use
  Company Number: CR-BAYER-2014-169367

PATIENT
  Age: 18 Year
  Sex: Female

DRUGS (1)
  1. YAZ [Suspect]
     Active Substance: DROSPIRENONE\ETHINYL ESTRADIOL
     Indication: CONTRACEPTION

REACTIONS (4)
  - Pulmonary embolism [None]
  - Hypotonia [None]
  - Syncope [None]
  - Feeling abnormal [None]

NARRATIVE: CASE EVENT DATE: 20141112
